FAERS Safety Report 7776588 (Version 3)
Quarter: 2013Q3

REPORT INFORMATION
  Report Type: Spontaneous
  Country: US (occurrence: US)
  Receive Date: 20110127
  Receipt Date: 20130822
  Transmission Date: 20140515
  Serious: Yes (Death, Hospitalization, Other)
  Sender: FDA-Public Use
  Company Number: US-PFIZER INC-2011013175

PATIENT
  Age: 51 Year
  Sex: Male

DRUGS (22)
  1. DILANTIN [Suspect]
     Indication: CONVULSION
     Dosage: 300 MG, 1X/DAY (100MG THREE CAPSULES AT BED TIME)
     Route: 048
     Dates: start: 20081208, end: 20081230
  2. PHENYTOIN [Suspect]
     Indication: CONVULSION
     Route: 048
  3. PERCOCET [Concomitant]
     Dosage: 5-325MG, 4X/DAY (FOR EVERY SIX HOURS AS NEEDED)
     Route: 048
     Dates: start: 20081223
  4. DILTIAZEM [Concomitant]
     Dosage: 25 ML, UNK
     Route: 042
     Dates: start: 20081223
  5. CALCIUM ACETATE [Concomitant]
     Dosage: 3X/DAY BEFORE MEALS, UNK
     Route: 048
     Dates: start: 20081225
  6. PEPCID [Concomitant]
     Dosage: 20 MG, 1X/DAY (AT BED TIME)
     Route: 048
     Dates: start: 20081230
  7. MERREM [Concomitant]
     Dosage: 500 MG, 2X/DAY (FOR EVERY TWELVE HOURS)
     Route: 042
     Dates: start: 20081230
  8. COMBIVENT [Concomitant]
     Dosage: FOR EVERY FOUR HOURS, UNK
     Route: 048
     Dates: start: 20081230
  9. CALCIUM CARBONATE [Concomitant]
     Dosage: 625 MG, 4X/DAY (FOR EVERY SIX HOURS)
     Route: 030
     Dates: start: 20081230
  10. CHLORHEXIDINE GLUCONATE [Concomitant]
     Dosage: UNK
     Route: 042
     Dates: start: 20081230
  11. SOLU-CORTEF [Concomitant]
     Dosage: 50 MG, 4X/DAY (FOR EVERY SIX HOURS)
     Route: 042
     Dates: start: 20081230
  12. METRONIDAZOLE [Concomitant]
     Dosage: 500 MG, 3X/DAY (FOR EVERY EIGHT HOURS)
     Route: 042
     Dates: start: 20081230
  13. PROTONIX [Concomitant]
     Dosage: 40 MG, 1X/DAY
     Dates: start: 20081230
  14. ACEPHEN [Concomitant]
     Dosage: 650 MG, 4X/DAY (FOR EVERY SIX HOURS)
     Route: 054
     Dates: start: 20081230
  15. ATIVAN [Concomitant]
     Dosage: FOR EVERY SIX HOURS, UNK
     Route: 042
     Dates: start: 20081230
  16. TYLENOL [Concomitant]
     Dosage: UNK
     Dates: start: 20081230
  17. ZOSYN [Concomitant]
     Dosage: 2.25 G, 3X/DAY (FOR EVERY EIGHT HOURS)
     Route: 042
     Dates: start: 20081230, end: 20090101
  18. XOPENEX [Concomitant]
     Dosage: 0.5 ML, 4X/DAY (FOR EVERY SIX HOURS)
     Route: 048
     Dates: start: 20081230, end: 20090101
  19. XIGRIS [Concomitant]
     Dosage: UNK
     Dates: start: 20081230, end: 20090102
  20. CEREBYX [Concomitant]
     Dosage: 100 MG, 3X/DAY
     Route: 042
     Dates: start: 20081230, end: 20090105
  21. LOVENOX [Concomitant]
     Dosage: UNK
     Dates: start: 20081231
  22. ZYVOX [Concomitant]
     Dosage: FOR EVERY TWELVE HOURS, UNK
     Route: 042
     Dates: start: 20090101

REACTIONS (2)
  - Toxic epidermal necrolysis [Fatal]
  - Renal failure [Fatal]
